FAERS Safety Report 7534895-X (Version None)
Quarter: 2011Q2

REPORT INFORMATION
  Report Type: 
  Country: None (occurrence: None)
  Receive Date: 20110609
  Receipt Date: 20081103
  Transmission Date: 20111010
  Serious: Yes (Death, Other)
  Sender: FDA-Public Use
  Company Number: PHHY2008SI26858

PATIENT
  Sex: Male

DRUGS (5)
  1. FLUVASTATIN SODIUM [Suspect]
     Dosage: UNK
  2. PLAVIX [Concomitant]
     Dosage: 75 MG, UNK
  3. ASPIRIN [Concomitant]
     Dosage: 100 MG, UNK
  4. BISOPROLOL FUMARATE [Concomitant]
     Dosage: 2.5 MG, UNK
  5. TRANDOLAPRIL [Concomitant]
     Dosage: 2 MG, UNK

REACTIONS (2)
  - CORONARY ARTERY DISEASE [None]
  - DEATH [None]
